FAERS Safety Report 6388920-2 (Version None)
Quarter: 2009Q4

REPORT INFORMATION
  Report Type: 
  Country: None (occurrence: None)
  Receive Date: 20091001
  Receipt Date: 20090921
  Transmission Date: 20100525
  Serious: Yes (Other)
  Sender: FDA-Public Use
  Company Number: GXKR2009FR10479

PATIENT
  Sex: Female

DRUGS (7)
  1. AZATHIOPRINE [Suspect]
     Indication: DERMATOMYOSITIS
     Dosage: 150 MG/DAY, UNKOWN
     Dates: start: 20020101, end: 20070501
  2. METHOTREXATE             (METHOTREXATE) UNKNOWN [Suspect]
     Indication: DERMATOMYOSITIS
     Dosage: 15 MG/WEEK, UNKNOWN 20 MG/WEEK, UNKNOWN
     Dates: end: 20000101
  3. METHOTREXATE             (METHOTREXATE) UNKNOWN [Suspect]
     Indication: DERMATOMYOSITIS
     Dosage: 15 MG/WEEK, UNKNOWN 20 MG/WEEK, UNKNOWN
     Dates: start: 19980101
  4. PREDNISONE                 (PREDNISONE) UNKNOWN [Suspect]
     Indication: DERMATOMYOSITIS
     Dosage: 1 MG/KG/DAY, UNKNOWN 15 MG/DAY, UNKNOWN 10 MG/DAY, UNKNOWN
     Dates: start: 20020101
  5. SODIUM CALCIUM EDETATE            (SODIUM CALCIUM EDETATE) [Concomitant]
  6. PAMIDRONIC ACID               (PAMIDRONIC ACID) [Concomitant]
  7. IMMUNE GLOBULIN (HUMAN) [Concomitant]

REACTIONS (8)
  - DERMATOMYOSITIS [None]
  - DISEASE RECURRENCE [None]
  - DRUG INEFFECTIVE [None]
  - EPSTEIN-BARR VIRUS ASSOCIATED LYMPHOPROLIFERATIVE DISORDER [None]
  - GASTROINTESTINAL DISORDER [None]
  - LYMPHOMA [None]
  - PANNICULITIS [None]
  - THROMBOSIS [None]
